FAERS Safety Report 8509647-4 (Version None)
Quarter: 2012Q3

REPORT INFORMATION
  Report Type: 
  Country: None (occurrence: None)
  Receive Date: 20120713
  Receipt Date: 20120706
  Transmission Date: 20120928
  Serious: Yes (Hospitalization)
  Sender: FDA-Public Use
  Company Number: US-ABBOTT-12P-163-0953716-00

PATIENT
  Sex: Female
  Weight: 71.732 kg

DRUGS (7)
  1. HUMIRA [Suspect]
     Dates: start: 20120301, end: 20120401
  2. METOPROLOL TARTRATE [Concomitant]
     Indication: TACHYCARDIA
  3. CLONAZEPAM [Concomitant]
     Indication: RESTLESS LEGS SYNDROME
  4. AMBIEN [Concomitant]
     Indication: SLEEP DISORDER
  5. REQUIP [Concomitant]
     Indication: RESTLESS LEGS SYNDROME
  6. POTASSIUM CHLORIDE [Concomitant]
     Indication: BLOOD POTASSIUM DECREASED
  7. HUMIRA [Suspect]
     Indication: CROHN'S DISEASE
     Dates: start: 20100101, end: 20110701

REACTIONS (6)
  - INTESTINAL PERFORATION [None]
  - DYSPNOEA [None]
  - ABDOMINAL ADHESIONS [None]
  - LUPUS-LIKE SYNDROME [None]
  - OEDEMA PERIPHERAL [None]
  - COLONIC STENOSIS [None]
